FAERS Safety Report 9958302 (Version 2)
Quarter: 2014Q1

REPORT INFORMATION
  Report Type: Report from Study
  Country: PR (occurrence: PR)
  Receive Date: 20140304
  Receipt Date: 20140304
  Transmission Date: 20141002
  Serious: No
  Sender: FDA-Public Use
  Company Number: PR-ABBVIE-13P-131-1079810-00

PATIENT
  Sex: Female
  Weight: 90.8 kg

DRUGS (11)
  1. HUMIRA [Suspect]
     Indication: RHEUMATOID ARTHRITIS
     Route: 058
  2. ULTRACET [Concomitant]
     Indication: PAIN
     Route: 048
  3. KLONOPIN [Concomitant]
     Indication: MAJOR DEPRESSION
     Route: 048
  4. PREVASTATIN [Concomitant]
     Indication: BLOOD CHOLESTEROL
     Dosage: AT NIGHT
     Route: 048
  5. CARVEDILOL [Concomitant]
     Indication: CARDIOVASCULAR DISORDER
     Route: 048
  6. ZOLOFT [Concomitant]
     Indication: MAJOR DEPRESSION
     Route: 048
  7. ETODOLAC [Concomitant]
     Indication: PAIN
     Route: 048
  8. SKELAXIN [Concomitant]
     Indication: PAIN
     Dosage: AT NIGHT
     Route: 048
  9. PAMELOR [Concomitant]
     Indication: MAJOR DEPRESSION
     Route: 048
  10. CARAFATE [Concomitant]
     Indication: GASTROOESOPHAGEAL REFLUX DISEASE
     Route: 048
  11. ARICEPT [Concomitant]
     Indication: MAJOR DEPRESSION
     Route: 048

REACTIONS (1)
  - Bone pain [Recovered/Resolved]
